FAERS Safety Report 17440301 (Version 1)
Quarter: 2020Q1

REPORT INFORMATION
  Report Type: Spontaneous
  Country: US (occurrence: US)
  Receive Date: 20200205
  Receipt Date: 20200205
  Transmission Date: 20200409
  Serious: Yes (Hospitalization)
  Sender: FDA-Public Use
  Company Number: None

PATIENT
  Age: 26 Year
  Sex: Male

DRUGS (7)
  1. COSENTYX [Suspect]
     Active Substance: SECUKINUMAB
     Indication: PSORIASIS
     Route: 058
     Dates: start: 20190906
  2. CLINDAMYCIN CAP 150MG [Concomitant]
     Active Substance: CLINDAMYCIN
  3. LISINOPRIL TAB 10MG OPTUMRX DR. JOVANNA MORRISON [Concomitant]
     Active Substance: LISINOPRIL
  4. BD PEN NEEDL MIS [Concomitant]
  5. BASAGLAR [Concomitant]
     Active Substance: INSULIN GLARGINE
  6. LEVOTHYROXIN TAB 100MCG [Concomitant]
  7. TRIAMCINOLON CRE 0.1% [Concomitant]

REACTIONS (2)
  - Condition aggravated [None]
  - Rash [None]

NARRATIVE: CASE EVENT DATE: 20200120
